FAERS Safety Report 6296128-4 (Version None)
Quarter: 2009Q3

REPORT INFORMATION
  Report Type: 
  Country: None (occurrence: None)
  Receive Date: 20090804
  Receipt Date: 20090723
  Transmission Date: 20100115
  Serious: Yes (Other)
  Sender: FDA-Public Use
  Company Number: B0585460A

PATIENT
  Sex: Female

DRUGS (2)
  1. DIGIBIND [Suspect]
     Route: 042
     Dates: start: 20090715, end: 20090716
  2. DIGOXIN [Concomitant]
     Route: 048

REACTIONS (2)
  - BLOOD CREATININE INCREASED [None]
  - CARDIOACTIVE DRUG LEVEL INCREASED [None]
